FAERS Safety Report 9162302 (Version 1)
Quarter: 2013Q1

REPORT INFORMATION
  Report Type: Spontaneous
  Country: US (occurrence: US)
  Receive Date: 20130314
  Receipt Date: 20130314
  Transmission Date: 20140127
  Serious: No
  Sender: FDA-Public Use
  Company Number: US-PFIZER INC-2013081036

PATIENT
  Sex: Female

DRUGS (2)
  1. LEVOXYL [Suspect]
     Dosage: UNK
  2. LISINOPRIL [Suspect]
     Dosage: UNK

REACTIONS (3)
  - Alopecia [Unknown]
  - Cough [Unknown]
  - Blood thyroid stimulating hormone increased [Unknown]
